FAERS Safety Report 20947236 (Version 2)
Quarter: 2022Q2

REPORT INFORMATION
  Report Type: Report from Study
  Country: CA (occurrence: CA)
  Receive Date: 20220610
  Receipt Date: 20220614
  Transmission Date: 20220721
  Serious: Yes (Hospitalization, Other)
  Sender: FDA-Public Use
  Company Number: CA-HLS-202201029

PATIENT
  Age: 61 Year
  Sex: Female

DRUGS (1)
  1. CLOZARIL [Suspect]
     Active Substance: CLOZAPINE
     Indication: Product used for unknown indication
     Route: 048
     Dates: start: 20201005, end: 20201208

REACTIONS (6)
  - Hallucination, auditory [Unknown]
  - Lymphocyte count decreased [Unknown]
  - Suicidal ideation [Unknown]
  - Leukopenia [Unknown]
  - Neutropenia [Unknown]
  - Malaise [Unknown]

NARRATIVE: CASE EVENT DATE: 20201201
